FAERS Safety Report 8966766 (Version 1)
Quarter: 2012Q4

REPORT INFORMATION
  Report Type: 
  Country: US (occurrence: US)
  Receive Date: 20121217
  Receipt Date: 20121217
  Transmission Date: 20130627
  Serious: Yes (Other)
  Sender: FDA-Public Use
  Company Number: US-PFIZER INC-2012318494

PATIENT
  Sex: Male

DRUGS (1)
  1. GEODON [Suspect]
     Dosage: UNK
     Dates: start: 201212

REACTIONS (2)
  - Off label use [Unknown]
  - Loss of consciousness [Unknown]
